FAERS Safety Report 5506065-8 (Version None)
Quarter: 2007Q4

REPORT INFORMATION
  Report Type: 
  Country: None (occurrence: None)
  Receive Date: 20071105
  Receipt Date: 20071029
  Transmission Date: 20080405
  Serious: Yes (Other)
  Sender: FDA-Public Use
  Company Number: PHEH2007US14106

PATIENT
  Age: 82 Year
  Sex: Female
  Weight: 45.351 kg

DRUGS (13)
  1. EXELON [Suspect]
     Indication: DEMENTIA ALZHEIMER'S TYPE
     Dosage: 4.6 MG, QD
     Route: 062
     Dates: start: 20071023
  2. CALCITRIOL [Concomitant]
     Indication: OSTEOPOROSIS
     Dosage: 0.25 MG. 3XWEEK
     Route: 048
     Dates: start: 20070919
  3. MEMANTINE HCL [Concomitant]
     Indication: AMNESIA
     Dosage: 10 MG, BID
     Route: 048
     Dates: start: 20070918
  4. PRAVASTATIN [Concomitant]
     Indication: HYPERLIPIDAEMIA
     Dosage: 20 MG DAILY
     Route: 048
     Dates: start: 20070918
  5. ESCITALOPRAM OXALATE [Concomitant]
     Indication: DEPRESSION
     Dosage: 20 MG DAILY
     Route: 048
     Dates: start: 20070918
  6. FOSAMAX [Concomitant]
     Indication: OSTEOPOROSIS
     Dosage: 70 MG, ONCE WEEKLY
     Route: 048
     Dates: start: 20070918
  7. LANSOPRAZOLE [Concomitant]
     Indication: GASTROOESOPHAGEAL REFLUX DISEASE
     Dosage: 30 MG DAILY
     Route: 048
     Dates: start: 20070918
  8. PIOGLITAZONE [Concomitant]
     Indication: DIABETES MELLITUS
     Dosage: 15 MG DAILY
     Route: 048
     Dates: start: 20070918
  9. ACETAMINOPHEN [Concomitant]
     Indication: ARTHRALGIA
     Dosage: 325 MG, PRN
     Route: 048
     Dates: start: 20070918
  10. ACETAMINOPHEN W/ CODEINE [Concomitant]
     Indication: PAIN
     Dosage: 325/30MG, PRN
     Route: 048
     Dates: start: 20070918
  11. VALSARTAN [Concomitant]
     Indication: HYPERTENSION
     Dosage: 80 MG DAILY
     Route: 048
     Dates: start: 20070916
  12. BUPROPION HCL [Concomitant]
     Indication: DEPRESSION
     Dosage: 150 MG DAILY
     Dates: start: 20071022, end: 20071029
  13. EPOGEN [Concomitant]
     Indication: RENAL FAILURE CHRONIC

REACTIONS (8)
  - CONFUSIONAL STATE [None]
  - DEPRESSED LEVEL OF CONSCIOUSNESS [None]
  - DYSARTHRIA [None]
  - DYSKINESIA [None]
  - GAIT DISTURBANCE [None]
  - HALLUCINATION [None]
  - TREMOR [None]
  - UNRESPONSIVE TO STIMULI [None]
